FAERS Safety Report 14938311 (Version 1)
Quarter: 2018Q2

REPORT INFORMATION
  Report Type: Report from Study
  Country: MX (occurrence: MX)
  Receive Date: 20180525
  Receipt Date: 20180525
  Transmission Date: 20180711
  Serious: Yes (Death, Other)
  Sender: FDA-Public Use
  Company Number: MX-UCBSA-2018021815

PATIENT
  Age: 79 Year
  Sex: Female
  Weight: 49 kg

DRUGS (5)
  1. STALEVO [Concomitant]
     Active Substance: CARBIDOPA\ENTACAPONE\LEVODOPA
     Indication: PRODUCT USED FOR UNKNOWN INDICATION
     Dosage: 1 DF, ONCE DAILY (QD) AT MORNING
     Dates: start: 2017, end: 201712
  2. ROTIGOTINE [Suspect]
     Active Substance: ROTIGOTINE
     Indication: COORDINATION ABNORMAL
  3. ROTIGOTINE [Suspect]
     Active Substance: ROTIGOTINE
     Indication: DEMENTIA ALZHEIMER^S TYPE
     Dosage: 4 MG, ONCE DAILY (QD)
     Route: 062
     Dates: start: 2017
  4. SERTRALINE [Concomitant]
     Active Substance: SERTRALINE HYDROCHLORIDE
     Indication: DEPRESSION
     Dosage: 1 DF, ONCE DAILY (QD)
  5. ROTIGOTINE [Suspect]
     Active Substance: ROTIGOTINE
     Indication: OFF LABEL USE
     Dosage: 6 MG, ONCE DAILY (QD)
     Route: 062
     Dates: end: 201804

REACTIONS (11)
  - Immunodeficiency [Unknown]
  - Upper limb fracture [Unknown]
  - Fall [Unknown]
  - Hip fracture [Unknown]
  - Off label use [Unknown]
  - Urinary tract infection [Fatal]
  - Wrist fracture [Unknown]
  - Dementia Alzheimer^s type [Unknown]
  - Accident [Unknown]
  - Abdominal pain upper [Unknown]
  - Pneumonia [Fatal]

NARRATIVE: CASE EVENT DATE: 2017
